FAERS Safety Report 17278975 (Version 1)
Quarter: 2020Q1

REPORT INFORMATION
  Report Type: Spontaneous
  Country: US (occurrence: US)
  Receive Date: 20200116
  Receipt Date: 20200116
  Transmission Date: 20200409
  Serious: No
  Sender: FDA-Public Use
  Company Number: US-ASTRAZENECA-2019SF84522

PATIENT
  Age: 54 Year
  Sex: Female
  Weight: 77.1 kg

DRUGS (5)
  1. PULMICORT FLEXHALER [Suspect]
     Active Substance: BUDESONIDE
     Indication: ASTHMA
     Dosage: 180MCG ONE PUFF EVERY 12 HOURS, SHE CAN TAKE TWO PUFFS TWICE A DAY BUT SHE TRIES TO JUST TAKE ONE...
     Route: 055
     Dates: start: 2018, end: 20191214
  2. PULMICORT FLEXHALER [Suspect]
     Active Substance: BUDESONIDE
     Indication: ASTHMA
     Dosage: 180MCG ONE PUFF EVERY 12 HOURS
     Route: 055
  3. ALBUTEROL. [Concomitant]
     Active Substance: ALBUTEROL
  4. LOSARTAN. [Concomitant]
     Active Substance: LOSARTAN
     Indication: CARDIAC DISORDER
  5. SEREVENT DISKUS [Concomitant]
     Active Substance: SALMETEROL XINAFOATE

REACTIONS (5)
  - Wrong technique in device usage process [Not Recovered/Not Resolved]
  - Product dose omission [Not Recovered/Not Resolved]
  - Cough [Not Recovered/Not Resolved]
  - Dyspnoea [Not Recovered/Not Resolved]
  - Chest pain [Not Recovered/Not Resolved]

NARRATIVE: CASE EVENT DATE: 2018
